FAERS Safety Report 6156977-X (Version None)
Quarter: 2009Q2

REPORT INFORMATION
  Report Type: 
  Country: None (occurrence: None)
  Receive Date: 20090413
  Receipt Date: 20090413
  Transmission Date: 20091009
  Serious: Yes (Other)
  Sender: FDA-Public Use
  Company Number: None

PATIENT
  Age: 9 Year
  Sex: Female
  Weight: 33.1126 kg

DRUGS (1)
  1. TAMIFLU [Suspect]
     Indication: INFLUENZA
     Dosage: 1 TEASPOON TWICE AT DAY PO (DURATION: ONCE)
     Route: 048
     Dates: start: 20090409, end: 20090409

REACTIONS (4)
  - EMOTIONAL DISORDER [None]
  - HALLUCINATION [None]
  - PANIC REACTION [None]
  - VOMITING [None]
